FAERS Safety Report 17838576 (Version 1)
Quarter: 2020Q2

REPORT INFORMATION
  Report Type: Report from Study
  Country: BR (occurrence: BR)
  Receive Date: 20200528
  Receipt Date: 20200528
  Transmission Date: 20200714
  Serious: Yes (Death, Other)
  Sender: FDA-Public Use
  Company Number: NVSC2020BR141200

PATIENT
  Age: 56 Year
  Sex: Male

DRUGS (2)
  1. VOTRIENT [Suspect]
     Active Substance: PAZOPANIB HYDROCHLORIDE
     Dosage: UNK
     Route: 065
     Dates: start: 202002
  2. VOTRIENT [Suspect]
     Active Substance: PAZOPANIB HYDROCHLORIDE
     Indication: RENAL CANCER
     Dosage: UNK
     Route: 065
     Dates: start: 201901

REACTIONS (10)
  - Metastases to spine [Unknown]
  - Condition aggravated [Unknown]
  - Metastases to central nervous system [Unknown]
  - Decreased appetite [Unknown]
  - Inhibitory drug interaction [Unknown]
  - Off label use [Unknown]
  - Encephalopathy [Fatal]
  - Pancreatic mass [Unknown]
  - Confusional state [Unknown]
  - Yellow skin [Unknown]

NARRATIVE: CASE EVENT DATE: 20200207
